FAERS Safety Report 13447467 (Version 3)
Quarter: 2017Q2

REPORT INFORMATION
  Report Type: Spontaneous
  Country: US (occurrence: US)
  Receive Date: 20170417
  Receipt Date: 20170613
  Transmission Date: 20170830
  Serious: No
  Sender: FDA-Public Use
  Company Number: US-BAYER-2017-065374

PATIENT
  Age: 37 Year
  Sex: Female
  Weight: 48.75 kg

DRUGS (5)
  1. MIRENA [Suspect]
     Active Substance: LEVONORGESTREL
     Indication: CONTRACEPTION
     Dosage: 20 MCG/24HR, CONT
     Route: 015
     Dates: start: 20170130, end: 20170404
  2. FLOVENT [Concomitant]
     Active Substance: FLUTICASONE PROPIONATE
  3. SIMPLE SYRUP [Concomitant]
     Indication: COUGH
  4. CHERACOL [CODEINE PHOSPHATE,GUAIFENESIN] [Concomitant]
  5. ALBUTEROL SULFATE. [Concomitant]
     Active Substance: ALBUTEROL SULFATE

REACTIONS (4)
  - Device expulsion [None]
  - Vaginal haemorrhage [Recovered/Resolved]
  - Pelvic pain [None]
  - Vaginal haemorrhage [None]

NARRATIVE: CASE EVENT DATE: 201702
